FAERS Safety Report 12356855 (Version 1)
Quarter: 2016Q2

REPORT INFORMATION
  Report Type: Spontaneous
  Country: US (occurrence: US)
  Receive Date: 20160511
  Receipt Date: 20160511
  Transmission Date: 20160815
  Serious: No
  Sender: FDA-Public Use
  Company Number: US-PFIZER INC-2016235852

PATIENT
  Sex: Male

DRUGS (1)
  1. CHILDRENS ADVIL [Suspect]
     Active Substance: IBUPROFEN
     Dosage: 10 ML

REACTIONS (3)
  - Dysuria [Unknown]
  - Drug administered to patient of inappropriate age [Unknown]
  - Drug interaction [Unknown]
